FAERS Safety Report 9895761 (Version 1)
Quarter: 2014Q1

REPORT INFORMATION
  Report Type: Spontaneous
  Country: US (occurrence: US)
  Receive Date: 20140213
  Receipt Date: 20140213
  Transmission Date: 20141002
  Serious: No
  Sender: FDA-Public Use
  Company Number: US-BRISTOL-MYERS SQUIBB COMPANY-19443720

PATIENT
  Age: 64 Year
  Sex: Female

DRUGS (21)
  1. ABATACEPT SUBQ INJECTION 125MG/ML [Suspect]
     Indication: RHEUMATOID ARTHRITIS
     Route: 058
  2. FLONASE [Concomitant]
     Dosage: 1DF=SPR0.05%
  3. LASIX [Concomitant]
     Dosage: TABS
  4. FOSAMAX [Concomitant]
     Dosage: TABS
  5. OMEPRAZOLE [Concomitant]
     Dosage: CAPS
  6. PRAVASTATIN SODIUM [Concomitant]
     Dosage: TABS
  7. FLEXERIL [Concomitant]
     Dosage: TABS
  8. ARTHROTEC [Concomitant]
     Dosage: 1DF=50-UNITS NOS TABS
  9. NEURONTIN [Concomitant]
     Dosage: CAPS
  10. VITAMIN D3 [Concomitant]
     Dosage: CAPS ?1DF=1000UNITS
  11. RESTASIS [Concomitant]
     Dosage: 1DF=EMU 0.05%
  12. METHOTREXATE [Concomitant]
     Route: 042
  13. PROCARDIA [Concomitant]
     Dosage: TABS
  14. FOLIC ACID [Concomitant]
     Dosage: CAPS
  15. ALLEGRA [Concomitant]
     Dosage: TABS
  16. LIDODERM [Concomitant]
     Dosage: 1DF=5%-UNITS NOS
  17. FISH OIL [Concomitant]
     Dosage: CAPS
  18. BIOTIN [Concomitant]
     Dosage: 1DF=5000-UNITS NOS?CAPS
  19. CALCIUM [Concomitant]
     Dosage: 1DF=500-UNITS NOS?TABS
  20. PERCOCET TABS 10 MG/325 MG [Concomitant]
  21. ACETYLSALICYLIC ACID [Concomitant]
     Dosage: TABS

REACTIONS (1)
  - Rheumatoid arthritis [Unknown]
